FAERS Safety Report 6085783-X (Version None)
Quarter: 2009Q1

REPORT INFORMATION
  Report Type: 
  Country: None (occurrence: None)
  Receive Date: 20090217
  Receipt Date: 20090217
  Transmission Date: 20090719
  Serious: Yes (Life-Threatening)
  Sender: FDA-Public Use
  Company Number: None

PATIENT
  Age: 47 Year
  Sex: Female
  Weight: 49.8957 kg

DRUGS (1)
  1. AMBIEN [Suspect]
     Indication: DEPRESSION
     Dosage: 10MG 1 NIGHTLY USE AS NEEDED
     Dates: start: 20050110, end: 20090214

REACTIONS (3)
  - ABNORMAL BEHAVIOUR [None]
  - MEMORY IMPAIRMENT [None]
  - SUDDEN ONSET OF SLEEP [None]
